FAERS Safety Report 17064165 (Version 1)
Quarter: 2019Q4

REPORT INFORMATION
  Report Type: Spontaneous
  Country: US (occurrence: US)
  Receive Date: 20191024
  Receipt Date: 20191024
  Transmission Date: 20200122
  Serious: No
  Sender: FDA-Public Use
  Company Number: None

PATIENT
  Age: 65 Year
  Sex: Male

DRUGS (1)
  1. ENBREL [Suspect]
     Active Substance: ETANERCEPT
     Dosage: ?          OTHER DOSE:50;OTHER FREQUENCY:OTHER;?
     Route: 058
     Dates: start: 20171024

REACTIONS (2)
  - Drug ineffective [None]
  - Psoriasis [None]

NARRATIVE: CASE EVENT DATE: 20191024
